FAERS Safety Report 17751898 (Version 1)
Quarter: 2020Q2

REPORT INFORMATION
  Report Type: Spontaneous
  Country: US (occurrence: US)
  Receive Date: 20200506
  Receipt Date: 20200506
  Transmission Date: 20200714
  Serious: No
  Sender: FDA-Public Use
  Company Number: US-TEVA-2020-US-1230549

PATIENT
  Sex: Female

DRUGS (1)
  1. METHYLPHENIDATE. [Suspect]
     Active Substance: METHYLPHENIDATE
     Dosage: 5 MG
     Route: 065

REACTIONS (5)
  - Affective disorder [Unknown]
  - Headache [Unknown]
  - Somnolence [Unknown]
  - Product substitution issue [Unknown]
  - Therapeutic product effect decreased [Unknown]
